FAERS Safety Report 9051531 (Version 1)
Quarter: 2013Q1

REPORT INFORMATION
  Report Type: Spontaneous
  Country: US (occurrence: US)
  Receive Date: 20130207
  Receipt Date: 20130207
  Transmission Date: 20140127
  Serious: No
  Sender: FDA-Public Use
  Company Number: US-009507513-1302USA001847

PATIENT
  Age: 21 Year
  Sex: Female
  Weight: 57.14 kg

DRUGS (2)
  1. IMPLANON [Suspect]
     Indication: CONTRACEPTION
     Dosage: UNK
     Route: 059
  2. IMPLANON [Suspect]
     Dosage: UNK, EVERY 3 YEARS
     Route: 059
     Dates: start: 20121012

REACTIONS (8)
  - Vision blurred [Unknown]
  - Dizziness [Unknown]
  - Menstruation irregular [Unknown]
  - Migraine [Unknown]
  - Complication of device insertion [Unknown]
  - Device dislocation [Unknown]
  - Device difficult to use [Unknown]
  - Menstruation normal [Unknown]
